FAERS Safety Report 8225534 (Version 5)
Quarter: 2014Q1

REPORT INFORMATION
  Report Type: Report from Study
  Country: US (occurrence: US)
  Receive Date: 20111103
  Receipt Date: 20140120
  Transmission Date: 20141002
  Serious: Yes (Hospitalization, Other)
  Sender: FDA-Public Use
  Company Number: US-ALEXION-A201101646

PATIENT
  Age: 65 Year
  Sex: Female
  Weight: 106 kg

DRUGS (13)
  1. SOLIRIS [Suspect]
     Indication: PAROXYSMAL NOCTURNAL HAEMOGLOBINURIA
     Dosage: UNK
     Route: 042
  2. DICYCLOMINE [Concomitant]
     Dosage: 10 MG, BID
     Route: 048
  3. TYLENOL EXTRA STRENGTH [Concomitant]
  4. CENTRUM [Concomitant]
  5. MECLIZINE [Concomitant]
     Dosage: 25 MG, UNK
  6. ADVAIR [Concomitant]
     Dosage: UNK
  7. ARICEPT [Concomitant]
     Dosage: 5 MG, QD
  8. CARAFATE [Concomitant]
     Dosage: 1 G, BID
  9. NAFTIN [Concomitant]
     Indication: NAIL DISORDER
     Dosage: UNK
  10. ASPIRIN [Concomitant]
     Dosage: 81 MG, QD
  11. NEXIUM [Concomitant]
     Dosage: 40 MG, QD
  12. CARDIZEM [Concomitant]
     Dosage: 360 MG, QD
  13. CELEXA [Concomitant]
     Dosage: 40 MG, QD

REACTIONS (9)
  - Hepatitis C [Not Recovered/Not Resolved]
  - Chronic respiratory failure [Unknown]
  - Intestinal obstruction [Unknown]
  - Sepsis [Not Recovered/Not Resolved]
  - Pneumonia [Unknown]
  - Dialysis [Unknown]
  - Plasmapheresis [Unknown]
  - Rheumatoid arthritis [Unknown]
  - Rash [Unknown]
